FAERS Safety Report 7339055-3 (Version None)
Quarter: 2011Q1

REPORT INFORMATION
  Report Type: 
  Country: None (occurrence: None)
  Receive Date: 20110308
  Receipt Date: 20110223
  Transmission Date: 20110831
  Serious: Yes (Hospitalization)
  Sender: FDA-Public Use
  Company Number: FR-ELI_LILLY_AND_COMPANY-FR201102007118

PATIENT
  Sex: Female

DRUGS (5)
  1. CYMBALTA [Suspect]
     Dosage: 60 MG, DAILY (1/D)
     Route: 048
     Dates: start: 20101209
  2. LIORESAL [Concomitant]
     Dosage: 10 MG, 2/D
     Route: 048
     Dates: start: 20101209
  3. RIVOTRIL [Concomitant]
  4. DILTIAZEM [Concomitant]
     Dosage: 200 MG, UNK
  5. ACETAMINOPHEN [Concomitant]
     Indication: PAIN
     Dosage: UNK, AS NEEDED

REACTIONS (1)
  - HEPATITIS ACUTE [None]
